FAERS Safety Report 5960131-1 (Version None)
Quarter: 2008Q4

REPORT INFORMATION
  Report Type: 
  Country: None (occurrence: None)
  Receive Date: 20081118
  Receipt Date: 20081118
  Transmission Date: 20090506
  Serious: Yes (Life-Threatening, Other)
  Sender: FDA-Public Use
  Company Number: None

PATIENT
  Age: 33 Year
  Sex: Male
  Weight: 99.7913 kg

DRUGS (2)
  1. PROAIR HFA [Suspect]
     Indication: ASTHMA
     Dosage: 90 MCG 1 PUFF AS NEED INHAL VERY SHORT DURATION
     Route: 055
  2. PROVENTIL [Suspect]
     Indication: ASTHMA
     Dosage: 90 MCG 1 PUFF AS MEED INHAL VERY SHORT DURATION
     Route: 055

REACTIONS (2)
  - DRUG INEFFECTIVE [None]
  - PRODUCT QUALITY ISSUE [None]
